FAERS Safety Report 15385226 (Version 1)
Quarter: 2018Q3

REPORT INFORMATION
  Report Type: Spontaneous
  Country: US (occurrence: US)
  Receive Date: 20180914
  Receipt Date: 20180914
  Transmission Date: 20181010
  Serious: No
  Sender: FDA-Public Use
  Company Number: US-SA-2018SA247277

PATIENT
  Age: 86 Year
  Sex: Male

DRUGS (2)
  1. LOVENOX [Suspect]
     Active Substance: ENOXAPARIN SODIUM
     Indication: ADENOSQUAMOUS CELL LUNG CANCER STAGE III
  2. LOVENOX [Suspect]
     Active Substance: ENOXAPARIN SODIUM
     Indication: THROMBOSIS
     Dosage: 100 MG/ML, Q12H
     Route: 058

REACTIONS (3)
  - Injection site mass [Unknown]
  - Gastrointestinal pain [Unknown]
  - Diarrhoea [Unknown]
